FAERS Safety Report 10616993 (Version 2)
Quarter: 2014Q4

REPORT INFORMATION
  Report Type: Spontaneous
  Country: US (occurrence: US)
  Receive Date: 20141201
  Receipt Date: 20141222
  Transmission Date: 20150529
  Serious: No
  Sender: FDA-Public Use
  Company Number: US-GLAXOSMITHKLINE-US2014GSK025274

PATIENT
  Sex: Female

DRUGS (7)
  1. SPIRIVA [Concomitant]
     Active Substance: TIOTROPIUM BROMIDE MONOHYDRATE
  2. PREDNISONE. [Concomitant]
     Active Substance: PREDNISONE
  3. ADVAIR DISKUS [Suspect]
     Active Substance: FLUTICASONE PROPIONATE\SALMETEROL XINAFOATE
     Dosage: UNK
  4. TRAVATAN Z [Concomitant]
     Active Substance: TRAVOPROST
  5. ADVAIR DISKUS [Suspect]
     Active Substance: FLUTICASONE PROPIONATE\SALMETEROL XINAFOATE
     Indication: ASTHMA
     Dosage: 1 PUFF(S), BID
  6. EYE DROPS [Concomitant]
     Active Substance: TETRAHYDROZOLINE HYDROCHLORIDE
  7. LOSARTAN [Concomitant]
     Active Substance: LOSARTAN

REACTIONS (4)
  - Asthma [Not Recovered/Not Resolved]
  - Drug administration error [Unknown]
  - Product quality issue [Unknown]
  - Malaise [Not Recovered/Not Resolved]
